FAERS Safety Report 18500856 (Version 2)
Quarter: 2020Q4

REPORT INFORMATION
  Report Type: Spontaneous
  Country: IT (occurrence: IT)
  Receive Date: 20201113
  Receipt Date: 20201211
  Transmission Date: 20210114
  Serious: Yes (Hospitalization)
  Sender: FDA-Public Use
  Company Number: IT-ELI_LILLY_AND_COMPANY-IT202011001098

PATIENT
  Age: 6 Year
  Sex: Male
  Weight: 26 kg

DRUGS (1)
  1. HUMULIN R [Suspect]
     Active Substance: INSULIN HUMAN
     Indication: HYPERGLYCAEMIA
     Dosage: 1.5 INTERNATIONAL UNIT, PRN
     Route: 058
     Dates: start: 20201024

REACTIONS (5)
  - Hypotonia [Recovering/Resolving]
  - Cold sweat [Recovering/Resolving]
  - Hypoglycaemia [Recovering/Resolving]
  - Incorrect dose administered [Unknown]
  - Aphasia [Recovering/Resolving]

NARRATIVE: CASE EVENT DATE: 20201024
